FAERS Safety Report 6032537-6 (Version None)
Quarter: 2009Q1

REPORT INFORMATION
  Report Type: 
  Country: None (occurrence: None)
  Receive Date: 20090109
  Receipt Date: 20081208
  Transmission Date: 20090719
  Serious: No
  Sender: FDA-Public Use
  Company Number: A0759475A

PATIENT
  Age: 72 Year
  Sex: Female

DRUGS (11)
  1. TYKERB [Suspect]
     Indication: BREAST CANCER
     Dosage: 5TAB PER DAY
     Route: 048
  2. PREVACID [Concomitant]
  3. ZETIA [Concomitant]
  4. TEMAZEPAM [Concomitant]
  5. ASA LOW DOSE [Concomitant]
  6. TRAMADOL HCL [Concomitant]
  7. SERTRALINE [Concomitant]
  8. METFORMIN HCL [Concomitant]
  9. GLYBURIDE [Concomitant]
  10. MULTI-VITAMINS [Concomitant]
  11. EXTRA-C [Concomitant]

REACTIONS (3)
  - DRY SKIN [None]
  - SKIN CHAPPED [None]
  - SKIN LESION [None]
